FAERS Safety Report 9691795 (Version 1)
Quarter: 2013Q4

REPORT INFORMATION
  Report Type: Spontaneous
  Country: US (occurrence: US)
  Receive Date: 20131115
  Receipt Date: 20131115
  Transmission Date: 20140711
  Serious: Yes (Death, Other)
  Sender: FDA-Public Use
  Company Number: US-GILEAD-2013-0087672

PATIENT
  Age: 69 Year
  Sex: Female
  Weight: 78.91 kg

DRUGS (10)
  1. LETAIRIS [Suspect]
     Indication: PULMONARY ARTERIAL HYPERTENSION
     Dosage: 10 MG, QD
     Route: 048
     Dates: start: 20130819, end: 20131112
  2. LETAIRIS [Suspect]
     Dosage: 5 MG, UNK
     Route: 048
     Dates: start: 20130720, end: 20130819
  3. METFORMIN [Concomitant]
     Dosage: 500 MG, BID
     Route: 048
  4. SINGULAIR [Concomitant]
     Dosage: 10 MG, QD
     Route: 048
  5. VITAMIN B12 [Concomitant]
     Dosage: UNK
  6. ASA [Concomitant]
     Dosage: 81 MG, QD
     Route: 048
  7. CARVEDILOL [Concomitant]
     Dosage: 12.5 MG, BID
     Route: 048
  8. LATANOPROST [Concomitant]
     Dosage: 0.005 %,
     Route: 031
  9. LEVOFLOXACIN [Concomitant]
     Dosage: 88 ?G, QD
     Route: 048
  10. LOSARTIN [Concomitant]
     Dosage: 100 MG, QD
     Route: 048

REACTIONS (4)
  - Death [Fatal]
  - Dyspnoea [Unknown]
  - Nasal congestion [Unknown]
  - Oedema peripheral [Unknown]
